FAERS Safety Report 9578226 (Version 2)
Quarter: 2013Q4

REPORT INFORMATION
  Report Type: Spontaneous
  Country: US (occurrence: US)
  Receive Date: 20131001
  Receipt Date: 20131001
  Transmission Date: 20140711
  Serious: No
  Sender: FDA-Public Use
  Company Number: US-AMGEN-USASP2013002029

PATIENT
  Age: 62 Year
  Sex: Female
  Weight: 62.59 kg

DRUGS (4)
  1. ENBREL [Suspect]
     Indication: PSORIASIS
     Dosage: UNK
     Dates: start: 2011
  2. LEXAPRO [Concomitant]
     Dosage: UNK
  3. NEXIUM                             /01479302/ [Concomitant]
     Dosage: UNK
  4. ZETIA [Concomitant]
     Dosage: UNK

REACTIONS (2)
  - Erythema [Recovered/Resolved]
  - Skin exfoliation [Recovered/Resolved]
